FAERS Safety Report 4340621-8 (Version None)
Quarter: 2004Q2

REPORT INFORMATION
  Report Type: 
  Country: None (occurrence: None)
  Receive Date: 20040414
  Receipt Date: 20040402
  Transmission Date: 20050107
  Serious: Yes (Other)
  Sender: FDA-Public Use
  Company Number: HQWYE052424MAR04

PATIENT
  Sex: Male

DRUGS (1)
  1. ADVIL [Suspect]
     Dosage: 400 MG
     Route: 048

REACTIONS (1)
  - RENAL FAILURE [None]
